FAERS Safety Report 5556047-5 (Version None)
Quarter: 2007Q4

REPORT INFORMATION
  Report Type: 
  Country: None (occurrence: None)
  Receive Date: 20071213
  Receipt Date: 20071201
  Transmission Date: 20080405
  Serious: Yes (Other)
  Sender: FDA-Public Use
  Company Number: US-PFIZER INC-2007103460

PATIENT
  Sex: Female
  Weight: 59 kg

DRUGS (1)
  1. CHANTIX [Suspect]
     Indication: SMOKING CESSATION THERAPY
     Dates: start: 20070901, end: 20071101

REACTIONS (5)
  - DEAFNESS [None]
  - EAR PAIN [None]
  - HYPERSENSITIVITY [None]
  - OTORRHOEA [None]
  - SWELLING FACE [None]
